FAERS Safety Report 4809170-4 (Version None)
Quarter: 2005Q4

REPORT INFORMATION
  Report Type: 
  Country: None (occurrence: None)
  Receive Date: 20051021
  Receipt Date: 20020718
  Transmission Date: 20060501
  Serious: No
  Sender: FDA-Public Use
  Company Number: US_020786352

PATIENT
  Age: 50 Year
  Sex: Female

DRUGS (3)
  1. ZYPREXA [Suspect]
     Indication: SCHIZOPHRENIA
     Dosage: 15 MG/DAY
  2. RISPERDAL [Concomitant]
  3. CHLORPROMAZINE HCL [Concomitant]

REACTIONS (1)
  - WHITE BLOOD CELL COUNT DECREASED [None]
